FAERS Safety Report 4819870-8 (Version None)
Quarter: 2005Q4

REPORT INFORMATION
  Report Type: 
  Country: None (occurrence: None)
  Receive Date: 20051103
  Receipt Date: 20040401
  Transmission Date: 20060501
  Serious: Yes (Hospitalization, Disabling)
  Sender: FDA-Public Use
  Company Number: US-MERCK-0404USA00096

PATIENT
  Age: 53 Year
  Sex: Male
  Weight: 74 kg

DRUGS (16)
  1. IBUPROFEN [Concomitant]
     Route: 065
  2. ZANAFLEX [Concomitant]
     Indication: MUSCLE RELAXANT THERAPY
     Route: 065
     Dates: start: 20000201, end: 20010901
  3. ALTACE [Concomitant]
     Route: 065
     Dates: start: 20020701
  4. DIAZEPAM [Concomitant]
     Route: 065
  5. HYDROCODONE BITARTRATE [Concomitant]
     Route: 065
  6. HYDROCODONE BITARTRATE [Concomitant]
     Route: 065
     Dates: start: 19980101, end: 19990101
  7. OXYCONTIN [Concomitant]
     Route: 065
     Dates: start: 19980101, end: 19990101
  8. VIOXX [Suspect]
     Indication: ARTHRALGIA
     Route: 048
     Dates: start: 19990601
  9. VIOXX [Suspect]
     Route: 048
     Dates: start: 19990601
  10. VIOXX [Suspect]
     Route: 048
     Dates: start: 19990601
  11. VIOXX [Suspect]
     Route: 048
     Dates: start: 19990601
  12. VIAGRA [Concomitant]
     Indication: ERECTILE DYSFUNCTION
     Route: 065
     Dates: start: 19990101
  13. AMOXICILLIN [Concomitant]
     Route: 065
  14. PLAVIX [Concomitant]
     Route: 065
     Dates: start: 20020701
  15. AMBIEN [Concomitant]
     Indication: SLEEP DISORDER THERAPY
     Route: 065
     Dates: start: 19991001, end: 20020701
  16. TRAZODONE HYDROCHLORIDE [Concomitant]
     Route: 065
     Dates: start: 20011101, end: 20020501

REACTIONS (24)
  - ACUTE MYOCARDIAL INFARCTION [None]
  - ANGINA PECTORIS [None]
  - ARTHROPATHY [None]
  - BURSITIS [None]
  - CHEST PAIN [None]
  - CORONARY ARTERY DISEASE [None]
  - DEPRESSION [None]
  - DIZZINESS [None]
  - ERECTILE DYSFUNCTION [None]
  - HYPERCHOLESTEROLAEMIA [None]
  - HYPERGLYCAEMIA [None]
  - HYPERTENSION [None]
  - IMPINGEMENT SYNDROME [None]
  - LACERATION [None]
  - MITRAL VALVE INCOMPETENCE [None]
  - MUSCULOSKELETAL CHEST PAIN [None]
  - PALPITATIONS [None]
  - PERONEAL NERVE PALSY [None]
  - PLEURITIC PAIN [None]
  - ROTATOR CUFF SYNDROME [None]
  - SHOULDER PAIN [None]
  - SINUS BRADYCARDIA [None]
  - SKIN INJURY [None]
  - TRICUSPID VALVE INCOMPETENCE [None]
